FAERS Safety Report 6170374-2 (Version None)
Quarter: 2009Q2

REPORT INFORMATION
  Report Type: 
  Country: None (occurrence: None)
  Receive Date: 20090427
  Receipt Date: 20090427
  Transmission Date: 20091009
  Serious: No
  Sender: FDA-Public Use
  Company Number: None

PATIENT
  Age: 91 Year
  Sex: Male
  Weight: 75 kg

DRUGS (9)
  1. MORPHINE [Suspect]
     Indication: PAIN
     Dosage: 1 MG IV X 1
     Route: 042
     Dates: start: 20090106
  2. ASPIRIN [Concomitant]
  3. DUCOSATE [Concomitant]
  4. LEVOFLOX [Concomitant]
  5. FINASTERIDE [Concomitant]
  6. METOPROLOL TARTRATE [Concomitant]
  7. PEROXETINE [Concomitant]
  8. APAP TAB [Concomitant]
  9. IRON [Concomitant]

REACTIONS (1)
  - SEDATION [None]
